FAERS Safety Report 26148192 (Version 1)
Quarter: 2025Q4

REPORT INFORMATION
  Report Type: Spontaneous
  Country: JP (occurrence: JP)
  Receive Date: 20251212
  Receipt Date: 20251212
  Transmission Date: 20260118
  Serious: Yes (Other)
  Sender: ROCHE
  Company Number: JP-CHUGAI-2025028444

PATIENT
  Age: 6 Decade
  Sex: Male

DRUGS (2)
  1. PIASKY [Suspect]
     Active Substance: CROVALIMAB-AKKZ
     Indication: Paroxysmal nocturnal haemoglobinuria
     Dosage: UNK
     Route: 041
  2. PIASKY [Suspect]
     Active Substance: CROVALIMAB-AKKZ
     Route: 058

REACTIONS (3)
  - Haemoglobin increased [Unknown]
  - Type III immune complex mediated reaction [Recovered/Resolved]
  - Anaemia [Not Recovered/Not Resolved]

NARRATIVE: CASE EVENT DATE: 20250101
